FAERS Safety Report 15286887 (Version 2)
Quarter: 2018Q3

REPORT INFORMATION
  Report Type: Spontaneous
  Country: US (occurrence: US)
  Receive Date: 20180816
  Receipt Date: 20180904
  Transmission Date: 20181010
  Serious: No
  Sender: FDA-Public Use
  Company Number: US-GLAXOSMITHKLINE-US2018GSK139852

PATIENT
  Sex: Female

DRUGS (2)
  1. SUMATRIPTAN SUCCINATE SOLUTION FOR INJECTION IN PRE?FILLED PEN [Suspect]
     Active Substance: SUMATRIPTAN SUCCINATE
     Indication: HEADACHE
     Dosage: 6 MG, UNK
  2. BUTALBITAL + ACETAMINOPHEN + CAFFEINE [Concomitant]
     Active Substance: ACETAMINOPHEN\BUTABARBITAL\CAFFEINE
     Dosage: UNK

REACTIONS (3)
  - Drug dose omission [Unknown]
  - Vomiting [Unknown]
  - Product quality issue [Unknown]
